FAERS Safety Report 8037484-6 (Version None)
Quarter: 2012Q1

REPORT INFORMATION
  Report Type: 
  Country: None (occurrence: None)
  Receive Date: 20120111
  Receipt Date: 20120106
  Transmission Date: 20120608
  Serious: Yes (Other)
  Sender: FDA-Public Use
  Company Number: US-PFIZER INC-2012004888

PATIENT
  Sex: Female
  Weight: 127 kg

DRUGS (2)
  1. NUCYNTA [Concomitant]
     Dosage: UNK
  2. ARTHROTEC [Suspect]
     Indication: ARTHRITIS
     Dosage: 50/200 MG/MCG, 2X/DAY
     Route: 048
     Dates: start: 20050101

REACTIONS (2)
  - BLOOD POTASSIUM DECREASED [None]
  - BACK DISORDER [None]
